FAERS Safety Report 10375673 (Version 4)
Quarter: 2014Q4

REPORT INFORMATION
  Report Type: Spontaneous
  Country: US (occurrence: US)
  Receive Date: 20140811
  Receipt Date: 20141028
  Transmission Date: 20150528
  Serious: Yes (Other)
  Sender: FDA-Public Use
  Company Number: US-TEVA-500947USA

PATIENT
  Age: 45 Year
  Sex: Female
  Weight: 56.3 kg

DRUGS (1)
  1. PARAGARD T380A [Suspect]
     Active Substance: COPPER
     Indication: CONTRACEPTION
     Route: 015
     Dates: start: 20081002, end: 20140729

REACTIONS (2)
  - Device breakage [Not Recovered/Not Resolved]
  - Actinomycosis [Recovered/Resolved]

NARRATIVE: CASE EVENT DATE: 200809
